FAERS Safety Report 8406075-7 (Version None)
Quarter: 2012Q2

REPORT INFORMATION
  Report Type: 
  Country: None (occurrence: None)
  Receive Date: 20120323
  Receipt Date: 20110202
  Transmission Date: 20120825
  Serious: Yes (Hospitalization)
  Sender: FDA-Public Use
  Company Number: 163-21880-11011804

PATIENT
  Age: 67 Year
  Sex: Female

DRUGS (4)
  1. VITAMIN D (ERGOCALCIFEROL)(UNKNOWN) [Concomitant]
  2. REVLIMID [Suspect]
     Indication: MULTIPLE MYELOMA
     Dosage: 10 MG, DAILY FOR 21 DAYS, THEN 7 DAYS OFF, PO
     Route: 048
     Dates: start: 20100405
  3. LASIX [Concomitant]
  4. ASPIRIN [Concomitant]

REACTIONS (1)
  - CHRONIC OBSTRUCTIVE PULMONARY DISEASE [None]
